FAERS Safety Report 8935190 (Version 1)
Quarter: 2012Q4

REPORT INFORMATION
  Report Type: 
  Country: DK (occurrence: DK)
  Receive Date: 20121129
  Receipt Date: 20121129
  Transmission Date: 20130627
  Serious: Yes (Other)
  Sender: FDA-Public Use
  Company Number: PHHY2012DK028554

PATIENT
  Age: 61 None
  Sex: Male

DRUGS (4)
  1. METHOTREXATE [Suspect]
     Indication: PSORIATIC ARTHROPATHY
     Dosage: 10 mg, weekly
     Route: 048
     Dates: start: 20081219
  2. METHOTREXATE [Suspect]
     Dosage: UNK
     Route: 048
     Dates: end: 20100705
  3. FOLIC ACID [Suspect]
     Indication: PSORIATIC ARTHROPATHY
     Dates: start: 20081219, end: 20100705
  4. MEDROL [Concomitant]
     Indication: PSORIATIC ARTHROPATHY

REACTIONS (6)
  - Chronic obstructive pulmonary disease [Not Recovered/Not Resolved]
  - Emphysema [Not Recovered/Not Resolved]
  - Pneumonia [Recovering/Resolving]
  - Lung infection [Unknown]
  - Cough [Recovering/Resolving]
  - Dyspnoea [Recovering/Resolving]
